FAERS Safety Report 6283919-9 (Version None)
Quarter: 2009Q3

REPORT INFORMATION
  Report Type: 
  Country: None (occurrence: None)
  Receive Date: 20090722
  Receipt Date: 20090722
  Transmission Date: 20100115
  Serious: No
  Sender: FDA-Public Use
  Company Number: None

PATIENT
  Age: 7 Year
  Sex: Female
  Weight: 18.5975 kg

DRUGS (1)
  1. CLOMIPHENE CITRATE [Suspect]
     Indication: DRUG DISPENSING ERROR
     Dosage: 25MG DAILY OTHER
     Route: 050
     Dates: start: 20090710, end: 20090716

REACTIONS (1)
  - DRUG DISPENSING ERROR [None]
